FAERS Safety Report 24094183 (Version 1)
Quarter: 2024Q3

REPORT INFORMATION
  Report Type: Spontaneous
  Country: CN (occurrence: CN)
  Receive Date: 20240716
  Receipt Date: 20240716
  Transmission Date: 20241017
  Serious: Yes (Other)
  Sender: QILU TIANHE PHARMACEUTICAL
  Company Number: CN-QILU TIANHE PHARMACEUTICAL CO. LTD-QLT-000023-2024

PATIENT
  Age: 75 Year
  Sex: Male
  Weight: 47.5 kg

DRUGS (1)
  1. PIPERACILLIN AND TAZOBACTAM [Suspect]
     Active Substance: PIPERACILLIN SODIUM\TAZOBACTAM SODIUM
     Indication: End stage renal disease
     Dosage: 2.25 GRAMS THRICE DAILY (TID)
     Route: 041
     Dates: start: 20240624, end: 20240702

REACTIONS (1)
  - Toxic encephalopathy [Recovering/Resolving]

NARRATIVE: CASE EVENT DATE: 20240701
